FAERS Safety Report 4966788-6 (Version None)
Quarter: 2006Q2

REPORT INFORMATION
  Report Type: 
  Country: None (occurrence: None)
  Receive Date: 20060407
  Receipt Date: 20051013
  Transmission Date: 20061013
  Serious: Yes (Hospitalization, Disabling)
  Sender: FDA-Public Use
  Company Number: PR-MERCK-0510USA07298

PATIENT
  Age: 70 Year
  Sex: Male
  Weight: 57 kg

DRUGS (6)
  1. VIOXX [Suspect]
     Indication: RHEUMATOID ARTHRITIS
     Route: 048
     Dates: start: 19990101, end: 20040101
  2. PREDNISONE [Concomitant]
     Indication: ARTHRITIS
     Route: 065
     Dates: start: 19990901, end: 20021212
  3. VENTOLIN [Concomitant]
     Route: 065
     Dates: start: 19970127, end: 20060331
  4. PRILOSEC [Concomitant]
     Indication: GASTROOESOPHAGEAL REFLUX DISEASE
     Route: 065
     Dates: start: 19961021, end: 20020906
  5. PLIDAN (DIAZEPAM) [Concomitant]
     Indication: ANXIETY
     Route: 065
     Dates: start: 19990201
  6. ASPIRIN [Concomitant]
     Route: 065
     Dates: start: 20000101

REACTIONS (6)
  - CEREBROVASCULAR ACCIDENT [None]
  - DIARRHOEA [None]
  - GASTRIC DISORDER [None]
  - GASTROINTESTINAL DISORDER [None]
  - HERNIA [None]
  - OEDEMA [None]
